FAERS Safety Report 8556507-9 (Version None)
Quarter: 2012Q3

REPORT INFORMATION
  Report Type: 
  Country: None (occurrence: None)
  Receive Date: 20120801
  Receipt Date: 20120730
  Transmission Date: 20120928
  Serious: Yes (Other)
  Sender: FDA-Public Use
  Company Number: PHHY2012BR054405

PATIENT
  Sex: Female

DRUGS (3)
  1. AMLODOPINE BESYLATE AND VALSARTAN [Suspect]
     Dosage: 0.5 DF, UNK (VALS 320 MG AND AMLO 10 MG),
  2. AMLODOPINE BESYLATE AND VALSARTAN [Suspect]
     Indication: HYPERTENSION
     Dosage: 1 DF, UNK (VALS 320 AND AMLO 10 MG)
  3. AMLODOPINE BESYLATE AND VALSARTAN [Suspect]
     Dosage: 1 DF, UNK (VALS 160 MG AND AMLO 5 MG) IN MORNING

REACTIONS (6)
  - WRONG TECHNIQUE IN DRUG USAGE PROCESS [None]
  - BLOOD PRESSURE DECREASED [None]
  - COLORECTAL CANCER [None]
  - ASTHENIA [None]
  - HYPOAESTHESIA [None]
  - GAIT DISTURBANCE [None]
